FAERS Safety Report 9168893 (Version 2)
Quarter: 2013Q1

REPORT INFORMATION
  Report Type: Spontaneous
  Country: US (occurrence: None)
  Receive Date: 20130308
  Receipt Date: 20130318
  Transmission Date: 20140127
  Serious: Yes (Hospitalization)
  Sender: FDA-Public Use
  Company Number: JPI-P-030110

PATIENT
  Age: 61 Year
  Sex: Male
  Weight: 63.5 kg

DRUGS (3)
  1. XYREM [Suspect]
     Indication: SLEEP DISORDER
     Route: 048
     Dates: start: 200311
  2. XYREM [Suspect]
     Indication: SOMNOLENCE
     Route: 048
     Dates: start: 200311
  3. MODAFINIL [Concomitant]

REACTIONS (3)
  - Ascites [None]
  - Asthenia [None]
  - Liver disorder [None]
